FAERS Safety Report 8979637 (Version 2)
Quarter: 2013Q1

REPORT INFORMATION
  Report Type: Spontaneous
  Country: US (occurrence: US)
  Receive Date: 20121221
  Receipt Date: 20130122
  Transmission Date: 20140127
  Serious: Yes (Other)
  Sender: FDA-Public Use
  Company Number: US-ASTRAZENECA-2012SE93468

PATIENT
  Age: 72 Year
  Sex: Female
  Weight: 87.1 kg

DRUGS (11)
  1. NEXIUM [Suspect]
     Indication: GASTROOESOPHAGEAL REFLUX DISEASE
     Route: 048
  2. SYMBICORT [Suspect]
     Indication: CHRONIC OBSTRUCTIVE PULMONARY DISEASE
     Dosage: 160 MCG/ 4.5 MCG TWO PUFFS, BID
     Route: 055
     Dates: start: 20121126
  3. PREDNISONE [Suspect]
     Indication: FATIGUE
     Route: 048
     Dates: start: 20121126
  4. PREDNISONE [Suspect]
     Indication: FATIGUE
     Route: 048
  5. LEVAQUIN [Suspect]
     Indication: PNEUMONIA
     Route: 065
     Dates: start: 20121126
  6. VENTOLIN [Concomitant]
     Indication: CHRONIC OBSTRUCTIVE PULMONARY DISEASE
     Route: 055
  7. ASPIRIN [Concomitant]
     Indication: INTRACRANIAL ANEURYSM
     Route: 048
  8. ZOLOFT [Concomitant]
     Indication: DEPRESSION
     Route: 048
     Dates: start: 2010
  9. MULTI-VITAMIN [Concomitant]
     Dosage: DAILY
     Route: 048
  10. IRON [Concomitant]
     Indication: HAEMOGLOBIN DECREASED
     Route: 048
  11. SPIRIVA [Concomitant]

REACTIONS (19)
  - Intracranial aneurysm [Unknown]
  - Pneumonia aspiration [Unknown]
  - Fall [Unknown]
  - Rotator cuff syndrome [Unknown]
  - Meniscus injury [Unknown]
  - Weight increased [Unknown]
  - Sleep apnoea syndrome [Unknown]
  - Chronic obstructive pulmonary disease [Unknown]
  - Osteoporosis [Unknown]
  - Chest discomfort [Unknown]
  - Vitamin B6 decreased [Unknown]
  - Vitamin B12 decreased [Unknown]
  - Dysphonia [Unknown]
  - Laryngitis [Unknown]
  - Gastrooesophageal reflux disease [Unknown]
  - Haemoglobin abnormal [Unknown]
  - Fatigue [Unknown]
  - Pain [Unknown]
  - Asthenia [Unknown]
